FAERS Safety Report 19468300 (Version 1)
Quarter: 2021Q2

REPORT INFORMATION
  Report Type: Spontaneous
  Country: JP (occurrence: JP)
  Receive Date: 20210628
  Receipt Date: 20210628
  Transmission Date: 20210717
  Serious: Yes (Other)
  Sender: FDA-Public Use
  Company Number: JP-PFIZER INC-2021703169

PATIENT
  Age: 92 Year
  Sex: Female

DRUGS (3)
  1. CEFTRIAXONE. [Concomitant]
     Active Substance: CEFTRIAXONE
  2. AMPICILLIN SODIUM/SULBACTAM SODIUM [Suspect]
     Active Substance: AMPICILLIN SODIUM\SULBACTAM SODIUM
     Route: 041
  3. CEFACLOR. [Suspect]
     Active Substance: CEFACLOR
     Route: 048

REACTIONS (4)
  - Acute coronary syndrome [Unknown]
  - Kounis syndrome [Unknown]
  - Anaphylactic reaction [Unknown]
  - Myocardial infarction [Unknown]
